FAERS Safety Report 15136733 (Version 1)
Quarter: 2018Q3

REPORT INFORMATION
  Report Type: Spontaneous
  Country: US (occurrence: US)
  Receive Date: 20180712
  Receipt Date: 20180712
  Transmission Date: 20181010
  Serious: No
  Sender: FDA-Public Use
  Company Number: US-TARO-2017TAR00952

PATIENT
  Age: 85 Year
  Sex: Male

DRUGS (4)
  1. UNSPECIFIED DIURETIC [Concomitant]
     Active Substance: UNSPECIFIED INGREDIENT
  2. ACETAZOLAMIDE TABLETS 125 MG [Suspect]
     Active Substance: ACETAZOLAMIDE
     Dosage: UNK
     Dates: start: 201710, end: 201710
  3. ACETAZOLAMIDE TABLETS 125 MG [Suspect]
     Active Substance: ACETAZOLAMIDE
     Indication: INTRAOCULAR PRESSURE INCREASED
     Dosage: UNK
     Dates: start: 201709, end: 201709
  4. ACETAZOLAMIDE TABLETS 125 MG [Suspect]
     Active Substance: ACETAZOLAMIDE
     Dosage: UNK
     Dates: start: 201710

REACTIONS (3)
  - Pollakiuria [Recovered/Resolved]
  - Drug ineffective [Unknown]
  - Micturition urgency [Recovered/Resolved]

NARRATIVE: CASE EVENT DATE: 201710
